FAERS Safety Report 16759395 (Version 1)
Quarter: 2019Q4

REPORT INFORMATION
  Report Type: Spontaneous
  Country: US (occurrence: US)
  Receive Date: 20190829
  Receipt Date: 20190829
  Transmission Date: 20200122
  Serious: No
  Sender: FDA-Public Use
  Company Number: None

PATIENT
  Sex: Female

DRUGS (1)
  1. AIMOVIG [Suspect]
     Active Substance: ERENUMAB-AOOE
     Dosage: ?          OTHER FREQUENCY:ONCE MONTHLY;?
     Route: 058

REACTIONS (4)
  - Vitreous floaters [None]
  - Vision blurred [None]
  - Dry eye [None]
  - Muscle spasms [None]
